FAERS Safety Report 6086463-7 (Version None)
Quarter: 2009Q1

REPORT INFORMATION
  Report Type: 
  Country: None (occurrence: None)
  Receive Date: 20090223
  Receipt Date: 20090212
  Transmission Date: 20090719
  Serious: Yes (Other)
  Sender: FDA-Public Use
  Company Number: PHBS2009GB00815

PATIENT
  Age: 8 Year
  Sex: Male

DRUGS (2)
  1. RITALIN [Suspect]
     Indication: ATTENTION DEFICIT/HYPERACTIVITY DISORDER
     Dosage: 5 MG, QD
  2. RITALIN [Suspect]
     Dosage: 10 MG, BID

REACTIONS (3)
  - CONFUSIONAL STATE [None]
  - HALLUCINATIONS, MIXED [None]
  - SUSPICIOUSNESS [None]
